FAERS Safety Report 7169972-9 (Version None)
Quarter: 2010Q4

REPORT INFORMATION
  Report Type: 
  Country: None (occurrence: None)
  Receive Date: 20101217
  Receipt Date: 20101214
  Transmission Date: 20110411
  Serious: Yes (Death)
  Sender: FDA-Public Use
  Company Number: IT-CUBIST-2010S1001126

PATIENT
  Age: 11 Year
  Sex: Female

DRUGS (22)
  1. VORICONAZOLE [Concomitant]
     Indication: ASPERGILLOSIS
  2. CASPOFUNGIN [Concomitant]
     Dosage: DOSE UNIT:50
  3. LEVOFLOXACIN [Suspect]
  4. LINEZOLID [Concomitant]
  5. MEROPENEM [Concomitant]
  6. PIPERACILLIN W/TAZOBACTAM [Suspect]
  7. DOXYCYCLINE [Concomitant]
     Indication: ENTEROCOCCAL INFECTION
     Route: 048
  8. ANTI-THYMOGLOBULIN [Concomitant]
  9. FLUDARABINE PHOSPHATE [Concomitant]
  10. THIOTEPA [Concomitant]
  11. RITUXIMAB [Concomitant]
  12. CYCLOPHOSPHAMIDE [Suspect]
  13. METHOTREXATE [Suspect]
  14. CYCLOSPORINE [Suspect]
  15. METHYLPREDNISOLONE [Concomitant]
  16. CIPROFLOXACIN [Concomitant]
  17. PENTAMIDINE ISETHIONATE [Concomitant]
     Route: 055
  18. ANTIVIRALS FOR SYSTEMIC USE [Concomitant]
  19. AMPHOTERICIN B [Concomitant]
  20. CUBICIN [Suspect]
     Indication: ENTEROCOCCAL INFECTION
     Route: 042
     Dates: start: 20090101, end: 20090101
  21. CUBICIN [Suspect]
     Indication: BLOOD CULTURE POSITIVE
     Route: 042
     Dates: start: 20090101, end: 20090101
  22. CUBICIN [Suspect]
     Indication: SEPSIS
     Route: 042
     Dates: start: 20090101, end: 20090101

REACTIONS (2)
  - DRUG INEFFECTIVE FOR UNAPPROVED INDICATION [None]
  - ENTEROCOCCAL SEPSIS [None]
